FAERS Safety Report 7288318-9 (Version None)
Quarter: 2011Q1

REPORT INFORMATION
  Report Type: 
  Country: None (occurrence: None)
  Receive Date: 20110211
  Receipt Date: 20110128
  Transmission Date: 20110831
  Serious: No
  Sender: FDA-Public Use
  Company Number: FR-ROCHE-758138

PATIENT
  Age: 13 Year
  Sex: Male
  Weight: 37 kg

DRUGS (2)
  1. TAMIFLU [Suspect]
     Route: 048
     Dates: start: 20110128, end: 20110128
  2. TAMIFLU [Suspect]
     Route: 048
     Dates: start: 20110129

REACTIONS (2)
  - OVERDOSE [None]
  - NO ADVERSE EVENT [None]
